FAERS Safety Report 9783132 (Version 1)
Quarter: 2013Q4

REPORT INFORMATION
  Report Type: Spontaneous
  Country: US (occurrence: US)
  Receive Date: 20131226
  Receipt Date: 20131226
  Transmission Date: 20140711
  Serious: Yes (Hospitalization)
  Sender: FDA-Public Use
  Company Number: US-SA-2013SA134760

PATIENT
  Sex: 0

DRUGS (1)
  1. MULTAQ [Suspect]
     Route: 048
     Dates: end: 20131223

REACTIONS (2)
  - Adverse event [Unknown]
  - Drug dose omission [Unknown]
